FAERS Safety Report 10013755 (Version 1)
Quarter: 2014Q1

REPORT INFORMATION
  Report Type: Spontaneous
  Country: US (occurrence: US)
  Receive Date: 20140316
  Receipt Date: 20140316
  Transmission Date: 20141002
  Serious: No
  Sender: FDA-Public Use
  Company Number: US-BAYER-2014-038450

PATIENT
  Sex: Male

DRUGS (1)
  1. ALEVE CAPLET [Suspect]
     Indication: BACK PAIN
     Dosage: UNK
     Route: 048

REACTIONS (1)
  - Therapeutic response unexpected [None]
